FAERS Safety Report 17631989 (Version 2)
Quarter: 2020Q2

REPORT INFORMATION
  Report Type: Spontaneous
  Country: CH (occurrence: US)
  Receive Date: 20200406
  Receipt Date: 20200409
  Transmission Date: 20200713
  Serious: Yes (Other)
  Sender: FDA-Public Use
  Company Number: US-ASTELLAS-2020US012147

PATIENT
  Age: 73 Year
  Sex: Female

DRUGS (1)
  1. ISAVUCONAZOLE [Suspect]
     Active Substance: ISAVUCONAZOLE
     Indication: PNEUMONIA FUNGAL
     Dosage: UNK UNK, UNKNOWN FREQ.
     Route: 048

REACTIONS (3)
  - Syncope [Recovered/Resolved]
  - Product use in unapproved indication [Unknown]
  - Ventricular arrhythmia [Recovered/Resolved]
